FAERS Safety Report 23040875 (Version 5)
Quarter: 2023Q4

REPORT INFORMATION
  Report Type: Report from Study
  Country: FR (occurrence: FR)
  Receive Date: 20231006
  Receipt Date: 20231113
  Transmission Date: 20240109
  Serious: Yes (Death, Hospitalization)
  Sender: FDA-Public Use
  Company Number: FR-GENMAB-2023-01559

PATIENT
  Age: 77 Year
  Sex: Male
  Weight: 105 kg

DRUGS (36)
  1. EPCORITAMAB [Suspect]
     Active Substance: EPCORITAMAB
     Indication: Diffuse large B-cell lymphoma
     Dosage: PRIMING DOSE, DOSE: C1, D1  FREQUENCY: TOTAL
     Route: 058
     Dates: start: 20230816, end: 20230816
  2. EPCORITAMAB [Suspect]
     Active Substance: EPCORITAMAB
     Dosage: INTERMEDIATE DOSE, DOSE: C1, D8  FREQUENCY: TOTAL
     Route: 058
     Dates: start: 20230823, end: 20230823
  3. VINCRISTINE [Suspect]
     Active Substance: VINCRISTINE
     Indication: Diffuse large B-cell lymphoma
     Dosage: CYCLE 1 DAY 1
     Route: 042
     Dates: start: 20230816
  4. RITUXIMAB [Suspect]
     Active Substance: RITUXIMAB
     Indication: Diffuse large B-cell lymphoma
     Dosage: CYCLE 1 DAY 1
     Route: 042
     Dates: start: 20230816
  5. CYCLOPHOSPHAMIDE [Suspect]
     Active Substance: CYCLOPHOSPHAMIDE
     Indication: Diffuse large B-cell lymphoma
     Dosage: CYCLE 1 DAY 1
     Route: 042
     Dates: start: 20230816
  6. DOXORUBICIN [Suspect]
     Active Substance: DOXORUBICIN
     Indication: Diffuse large B-cell lymphoma
     Dosage: CYCLE 1 DAY 1
     Route: 042
     Dates: start: 20230816
  7. PREDNISONE [Suspect]
     Active Substance: PREDNISONE
     Indication: Diffuse large B-cell lymphoma
     Dosage: DAILY C1-6, DAY 1-5
     Route: 048
     Dates: start: 20230816
  8. APIXABAN [Concomitant]
     Active Substance: APIXABAN
     Indication: Arrhythmia
     Dosage: FREQUENCY: 2/DAYS
     Dates: start: 20230906, end: 20230911
  9. ALLOPURINOL SODIUM [Concomitant]
     Active Substance: ALLOPURINOL SODIUM
     Indication: Hyperuricaemia
     Dosage: 100 MG, 3/DAYS
     Dates: start: 20230809, end: 20230828
  10. ATORVASTATIN CALCIUM [Concomitant]
     Active Substance: ATORVASTATIN CALCIUM
     Indication: Dyslipidaemia
     Dosage: 10 MG, EVERY 1 DAYS
     Dates: start: 20230809, end: 20230902
  11. CANDESARTAN CILEXETIL [Concomitant]
     Active Substance: CANDESARTAN CILEXETIL
     Indication: Hypertension
     Dosage: 16 MG, EVERY 1 DAYS
     Dates: end: 20230824
  12. HYDROCHLOROTHIAZIDE [Concomitant]
     Active Substance: HYDROCHLOROTHIAZIDE
     Indication: Hypertension
     Dosage: 12.5 MG, EVERY 1 DAYS
     Dates: end: 20230924
  13. NEBIVOLOL HYDROCHLORIDE [Concomitant]
     Active Substance: NEBIVOLOL HYDROCHLORIDE
     Indication: Hypertension
     Dosage: 2.5 MG, EVERY 1 DAYS
     Dates: end: 20230828
  14. RILMENIDINE [Concomitant]
     Active Substance: RILMENIDINE
     Indication: Hypertension
     Dosage: 1 MG, EVERY 1 DAYS
     Dates: end: 20230828
  15. ZOPICLONE [Concomitant]
     Active Substance: ZOPICLONE
     Indication: Sleep disorder
     Dosage: 3.75 MG, EVERY 1 DAYS
     Dates: end: 20230827
  16. ZOPICLONE [Concomitant]
     Active Substance: ZOPICLONE
     Dosage: 3.75 MG, EVERY 1 DAYS
     Dates: end: 20230829
  17. IRON [IRON DEXTRAN] [Concomitant]
     Indication: Anaemia prophylaxis
     Dosage: 66 MG, 2/DAYS
     Dates: start: 20230809, end: 20230913
  18. PANTOPRAZOLE SODIUM [Concomitant]
     Active Substance: PANTOPRAZOLE SODIUM
     Indication: Prophylaxis against gastrointestinal ulcer
     Dosage: 20 MG, EVERY 1 DAYS
     Dates: start: 20230809, end: 20230914
  19. LIDOCAINE HYDROCHLORIDE [Concomitant]
     Active Substance: DEXTROSE MONOHYDRATE\EPINEPHRINE\EPINEPHRINE BITARTRATE\LIDOCAINE\LIDOCAINE HYDROCHLORIDE\LIDOCAINE
     Indication: Back pain
     Dosage: 5 PERCENT INTERMITTENT, EVERY 1 DAYS
     Dates: start: 20230810, end: 20230906
  20. TRAMADOL HYDROCHLORIDE [Concomitant]
     Active Substance: TRAMADOL HYDROCHLORIDE
     Indication: Abdominal pain
     Dosage: 150 MG, EVERY 1 DAYS
     Dates: start: 20230809, end: 20230814
  21. TRAMADOL HYDROCHLORIDE [Concomitant]
     Active Substance: TRAMADOL HYDROCHLORIDE
     Indication: Chest pain
     Dosage: 100 MG, EVERY 1 DAYS
     Dates: start: 20230814, end: 20230823
  22. POLYETHYLENE GLYCOLS [Concomitant]
     Active Substance: POLYETHYLENE GLYCOLS
     Indication: Constipation prophylaxis
     Dosage: FREQUENCY: 3/DAYS
     Dates: start: 20230814, end: 20230907
  23. NEFOPAM HYDROCHLORIDE [Concomitant]
     Active Substance: NEFOPAM HYDROCHLORIDE
     Indication: Abdominal pain
     Dosage: 20 MG, AS NECESSARY
     Dates: start: 20230812
  24. NEFOPAM HYDROCHLORIDE [Concomitant]
     Active Substance: NEFOPAM HYDROCHLORIDE
     Indication: Chest pain
     Dosage: 20 MG, AS NECESSARY
     Dates: start: 20230812
  25. PHOSPHORUS [Concomitant]
     Active Substance: PHOSPHORUS
     Indication: Prophylaxis
     Dosage: DOSE: 30 DROPS  FREQUENCY: 3/DAYS
     Dates: start: 20230818, end: 20230830
  26. MORPHINE SULFATE [Concomitant]
     Active Substance: MORPHINE SULFATE
     Indication: Chest pain
     Dosage: FREQUENCY: AS NECESSARY
     Dates: start: 20230823
  27. MORPHINE SULFATE [Concomitant]
     Active Substance: MORPHINE SULFATE
     Indication: Abdominal pain
  28. DAPTOMYCIN [Concomitant]
     Active Substance: DAPTOMYCIN
     Indication: Staphylococcal infection
     Dosage: 1000 MG, EVERY 1 DAYS
     Dates: start: 20230824, end: 20230824
  29. DAPTOMYCIN [Concomitant]
     Active Substance: DAPTOMYCIN
     Dosage: FREQUENCY: 4/DAYS
     Dates: start: 20230901
  30. FUROSEMIDE [Concomitant]
     Active Substance: FUROSEMIDE
     Indication: Acute kidney injury
     Dosage: 20 MG, EVERY 1 DAYS
     Dates: start: 20230828, end: 20230829
  31. FUROSEMIDE [Concomitant]
     Active Substance: FUROSEMIDE
     Dosage: 40 MG, EVERY 1 DAYS
     Dates: start: 20230905, end: 20230906
  32. FUROSEMIDE [Concomitant]
     Active Substance: FUROSEMIDE
     Dates: start: 20230908
  33. POTASSIUM CHLORIDE [Concomitant]
     Active Substance: POTASSIUM CHLORIDE
     Indication: Hypokalaemia
     Dosage: INTERMITTENT FREQUENCY: 6/DAYS
     Dates: start: 20230828, end: 20230829
  34. POTASSIUM CHLORIDE [Concomitant]
     Active Substance: POTASSIUM CHLORIDE
     Dosage: 600 MG
     Dates: start: 20230906
  35. VALACYCLOVIR HYDROCHLORIDE [Concomitant]
     Active Substance: VALACYCLOVIR HYDROCHLORIDE
     Indication: Antiviral prophylaxis
     Dosage: 500 MG, EVERY 1 DAYS
     Dates: start: 20230831, end: 20230902
  36. SKENAN [Concomitant]
     Active Substance: MORPHINE SULFATE
     Indication: Abdominal pain
     Dosage: 60 MILLIGRAM, QD
     Dates: start: 20230823

REACTIONS (5)
  - Enterobacter pneumonia [Fatal]
  - Escherichia infection [Not Recovered/Not Resolved]
  - Enterobacter pneumonia [Not Recovered/Not Resolved]
  - Staphylococcal infection [Recovered/Resolved]
  - Acute kidney injury [Not Recovered/Not Resolved]

NARRATIVE: CASE EVENT DATE: 20230824
